FAERS Safety Report 9666289 (Version 1)
Quarter: 2013Q4

REPORT INFORMATION
  Report Type: Spontaneous
  Country: US (occurrence: None)
  Receive Date: 20131031
  Receipt Date: 20131031
  Transmission Date: 20140711
  Serious: Yes (Hospitalization)
  Sender: FDA-Public Use
  Company Number: AUR-APL-2013-09075

PATIENT
  Age: 11 Year
  Sex: Male
  Weight: 52 kg

DRUGS (2)
  1. RISPERIDONE (RISPERIDONE) [Suspect]
     Indication: PRODUCT USED FOR UNKNOWN INDICATION
  2. BENZOTROPINE [Suspect]
     Indication: PRODUCT USED FOR UNKNOWN INDICATION

REACTIONS (8)
  - Mydriasis [None]
  - Mucous membrane disorder [None]
  - Anhidrosis [None]
  - Agitation [None]
  - Confusional state [None]
  - Sinus tachycardia [None]
  - Delirium [None]
  - Child abuse [None]
